FAERS Safety Report 9657932 (Version 1)
Quarter: 2013Q4

REPORT INFORMATION
  Report Type: Report from Study
  Country: US (occurrence: US)
  Receive Date: 20131030
  Receipt Date: 20131030
  Transmission Date: 20140711
  Serious: Yes (Death)
  Sender: FDA-Public Use
  Company Number: GXBR2013US001890

PATIENT
  Age: 57 Year
  Sex: Female

DRUGS (1)
  1. ENOXAPARIN SODIUM [Suspect]
     Indication: GLIOBLASTOMA MULTIFORME
     Dosage: 40 MG, Q12H
     Route: 058
     Dates: start: 201308

REACTIONS (1)
  - Death [Fatal]
